FAERS Safety Report 4596581-8 (Version None)
Quarter: 2005Q1

REPORT INFORMATION
  Report Type: 
  Country: None (occurrence: None)
  Receive Date: 20050228
  Receipt Date: 20050210
  Transmission Date: 20050727
  Serious: Yes (Disabling)
  Sender: FDA-Public Use
  Company Number: 2005-FF-00031FF

PATIENT
  Age: 55 Year
  Sex: Male

DRUGS (1)
  1. MOBIC [Suspect]
     Indication: BACK PAIN
     Dosage: IM
     Route: 030
     Dates: start: 20040401

REACTIONS (3)
  - NEURITIS [None]
  - SCOTOMA [None]
  - VISUAL ACUITY REDUCED [None]
